FAERS Safety Report 9536365 (Version 2)
Quarter: 2013Q3

REPORT INFORMATION
  Report Type: Spontaneous
  Country: GB (occurrence: GB)
  Receive Date: 20130919
  Receipt Date: 20130919
  Transmission Date: 20140515
  Serious: Yes (Hospitalization)
  Sender: FDA-Public Use
  Company Number: GB-ASTRAZENECA-2013SE64327

PATIENT
  Age: 55 Year
  Sex: Male
  Weight: 115 kg

DRUGS (10)
  1. ZOLADEX [Suspect]
     Indication: PROSTATE CANCER
     Route: 058
     Dates: start: 20130708, end: 20130805
  2. SYMBICORT [Concomitant]
  3. OMEPRAZOLE [Concomitant]
     Indication: GASTROOESOPHAGEAL REFLUX DISEASE
     Route: 048
     Dates: start: 2010
  4. METFORMIN [Concomitant]
     Indication: TYPE 2 DIABETES MELLITUS
     Route: 048
     Dates: start: 2011
  5. ATORVASTATIN [Concomitant]
     Indication: BLOOD CHOLESTEROL ABNORMAL
     Route: 048
     Dates: start: 2006
  6. EZETIMIBE [Concomitant]
     Indication: LIPIDS INCREASED
     Route: 048
     Dates: start: 2007
  7. PERINDOPRIL [Concomitant]
     Indication: BLOOD PRESSURE INCREASED
     Route: 048
     Dates: start: 2006
  8. GLICLAZIDE [Concomitant]
     Indication: TYPE 2 DIABETES MELLITUS
     Route: 048
  9. ASPIRIN [Concomitant]
     Dates: start: 2006
  10. SALBUTAMOL [Concomitant]
     Dates: start: 2008

REACTIONS (2)
  - Blood glucose abnormal [Recovering/Resolving]
  - Dyspnoea [Not Recovered/Not Resolved]
